FAERS Safety Report 10167206 (Version 1)
Quarter: 2014Q2

REPORT INFORMATION
  Report Type: Report from Study
  Country: AU (occurrence: AU)
  Receive Date: 20140512
  Receipt Date: 20140512
  Transmission Date: 20141212
  Serious: Yes (Hospitalization, Other)
  Sender: FDA-Public Use
  Company Number: PHHY2014AU054499

PATIENT
  Age: 80 Year
  Sex: Male

DRUGS (21)
  1. ACLASTA [Suspect]
     Dosage: UNK
     Route: 042
  2. ACLASTA [Suspect]
     Dosage: UNK
     Route: 042
     Dates: start: 20140403
  3. ALDACTONE [Concomitant]
     Dosage: 25 MG DAILY
     Route: 048
     Dates: start: 20140415
  4. ARAVA [Concomitant]
     Dosage: 20 MG, DAILY
     Route: 048
     Dates: start: 20140422
  5. ASTRIX [Concomitant]
     Dosage: 100 MG, QD
     Route: 048
     Dates: start: 20140228
  6. AVANZA [Concomitant]
     Dosage: 15 MG, UNK
     Route: 048
     Dates: start: 20140131
  7. CALTRATE [Concomitant]
     Dosage: 1500 MG, BID
     Route: 048
     Dates: start: 20140124
  8. VITAMIN D [Concomitant]
     Dosage: UNK (600 MG CA/400 UNITS)
  9. CARBIMAZOLE [Concomitant]
     Dosage: 5 MG, BID
     Route: 048
     Dates: start: 20140228
  10. CECLOR [Concomitant]
     Dosage: 375 MG, BID
     Route: 048
     Dates: start: 20140422
  11. LIPEX [Concomitant]
     Dosage: 20 MG, (ONE AT NIGHT)
     Route: 048
     Dates: start: 20140117
  12. MINAX [Concomitant]
     Dosage: 25 MG, BID
     Route: 048
     Dates: start: 20130312
  13. NEXIUM//ESOMEPRAZOLE MAGNESIUM [Concomitant]
     Dosage: 40 MG DAILY
     Route: 048
     Dates: start: 20140228
  14. PLAVIX [Concomitant]
     Dosage: 75 MG, QD
     Route: 048
     Dates: start: 20140415
  15. PREDNISOLONE [Concomitant]
     Dosage: 20 MG, QD WITH FOOD
     Route: 048
     Dates: start: 20140422
  16. SLOW K [Concomitant]
     Dosage: 600 MG, BID
     Route: 048
     Dates: start: 20140419
  17. SUSTAGEN [Concomitant]
     Dosage: UNK UKN, UNK
     Route: 048
     Dates: start: 20131122
  18. SYMBICORT [Concomitant]
     Indication: CHRONIC OBSTRUCTIVE PULMONARY DISEASE
     Dosage: 2 DF, UNK
     Route: 055
     Dates: start: 20140228
  19. SYMBICORT [Concomitant]
     Indication: CHRONIC OBSTRUCTIVE PULMONARY DISEASE
  20. ZOLOFT [Concomitant]
     Dosage: UNK UKN, UNK
  21. PTU [Concomitant]
     Dosage: UNK UKN, UNK

REACTIONS (10)
  - Chronic obstructive pulmonary disease [Recovered/Resolved]
  - Infection [Recovered/Resolved]
  - Cellulitis [Recovered/Resolved]
  - Acute myocardial infarction [Recovered/Resolved]
  - Sepsis [Unknown]
  - Pyrexia [Unknown]
  - Cerebral infarction [Unknown]
  - Sciatica [Unknown]
  - Hypernatraemia [Unknown]
  - Hypokalaemia [Unknown]
